FAERS Safety Report 4844735-5 (Version None)
Quarter: 2005Q4

REPORT INFORMATION
  Report Type: 
  Country: None (occurrence: None)
  Receive Date: 20051201
  Receipt Date: 20051201
  Transmission Date: 20060501
  Serious: Yes (Hospitalization)
  Sender: FDA-Public Use
  Company Number: None

PATIENT
  Sex: Male

DRUGS (12)
  1. MINOXIDIL [Suspect]
     Indication: HYPERTENSION
     Dosage: 10 MG  DAILY  PO
     Route: 048
     Dates: start: 20050915, end: 20050919
  2. ASPIRIN [Concomitant]
  3. ATENOLOL [Concomitant]
  4. COMBIVENT [Concomitant]
  5. FELODIPINE [Concomitant]
  6. FLUNISOLIDE NASAL [Concomitant]
  7. FOSINOPRIL [Concomitant]
  8. GLYBURIDE [Concomitant]
  9. GUAIFENESIN [Concomitant]
  10. HYDROCHLOROTHIAZIDE [Concomitant]
  11. LORATADINE [Concomitant]
  12. PAROXETINE HCL [Concomitant]

REACTIONS (4)
  - DIZZINESS [None]
  - HEADACHE [None]
  - PALPITATIONS [None]
  - VISION BLURRED [None]
